FAERS Safety Report 5169065-6 (Version None)
Quarter: 2006Q4

REPORT INFORMATION
  Report Type: 
  Country: None (occurrence: None)
  Receive Date: 20061201
  Receipt Date: 20061122
  Transmission Date: 20070319
  Serious: Yes (Other)
  Sender: FDA-Public Use
  Company Number: 2006129767

PATIENT
  Age: 56 Year
  Sex: Female
  Weight: 61.2356 kg

DRUGS (4)
  1. NATURAL CITRUS LISTERINE [Suspect]
     Indication: DENTAL DISORDER PROPHYLAXIS
     Dosage: 2 TEASPOONS TWICE DAILY, ORAL
     Route: 048
     Dates: start: 20060401, end: 20061001
  2. LISTERINE POCKETPAKS CINNAMON (MENTHOL, METHYL SALICYCLATE, EUCALYPTOL [Suspect]
     Indication: DENTAL DISORDER PROPHYLAXIS
     Dosage: 2 STRIPS TWICE DAILY, ORAL
     Route: 048
     Dates: start: 20060401
  3. HYDROGEN PEROXIDE            (HYDROGEN PEROXIDE) [Suspect]
     Indication: DENTAL DISORDER PROPHYLAXIS
     Dosage: 3 TIMES DAILY, ORAL
     Route: 048
     Dates: start: 20060401, end: 20060401
  4. ATORVASTATIN CALCIUM [Concomitant]

REACTIONS (3)
  - LOOSE TOOTH [None]
  - TOOTH EXTRACTION [None]
  - TOOTH LOSS [None]
